FAERS Safety Report 6913376-8 (Version None)
Quarter: 2010Q3

REPORT INFORMATION
  Report Type: 
  Country: None (occurrence: None)
  Receive Date: 20100809
  Receipt Date: 20100726
  Transmission Date: 20110219
  Serious: Yes (Hospitalization)
  Sender: FDA-Public Use
  Company Number: US-ELI_LILLY_AND_COMPANY-US201004004711

PATIENT
  Age: 59 Year
  Sex: Female

DRUGS (2)
  1. FORTEO [Suspect]
  2. FORTEO [Suspect]

REACTIONS (5)
  - FALL [None]
  - HEAD INJURY [None]
  - HYPERTHYROIDISM [None]
  - NAUSEA [None]
  - VOMITING [None]
